FAERS Safety Report 19077990 (Version 2)
Quarter: 2021Q2

REPORT INFORMATION
  Report Type: Spontaneous
  Country: GB (occurrence: GB)
  Receive Date: 20210331
  Receipt Date: 20210406
  Transmission Date: 20210717
  Serious: Yes (Hospitalization, Other)
  Sender: FDA-Public Use
  Company Number: GB-PFIZER INC-2021324056

PATIENT
  Age: 79 Year
  Sex: Female

DRUGS (6)
  1. ACETYLSALICYLIC ACID [Concomitant]
     Active Substance: ASPIRIN
     Indication: POLYMYALGIA RHEUMATICA
     Dosage: 75 MG, DAILY
  2. HYDROCORTISONE. [Suspect]
     Active Substance: HYDROCORTISONE
     Indication: ECZEMA
     Dosage: UNK(CREAM)
     Route: 061
     Dates: start: 2019, end: 2019
  3. ATORVASTATIN [Concomitant]
     Active Substance: ATORVASTATIN
     Indication: POLYMYALGIA RHEUMATICA
     Dosage: 20 MG, DAILY
  4. NEBIVOLOL. [Concomitant]
     Active Substance: NEBIVOLOL
     Indication: POLYMYALGIA RHEUMATICA
     Dosage: 5 MG, DAILY
  5. PERINDOPRIL [Concomitant]
     Active Substance: PERINDOPRIL
     Indication: POLYMYALGIA RHEUMATICA
     Dosage: 6 MG, DAILY
  6. LERCANIDIPINE [Concomitant]
     Active Substance: LERCANIDIPINE
     Indication: POLYMYALGIA RHEUMATICA
     Dosage: 10 MG, DAILY

REACTIONS (14)
  - Agitation [Recovering/Resolving]
  - Decreased interest [Recovering/Resolving]
  - Disturbance in attention [Recovering/Resolving]
  - Mood swings [Recovering/Resolving]
  - Insomnia [Recovering/Resolving]
  - Affective disorder [Recovering/Resolving]
  - Energy increased [Recovering/Resolving]
  - Decreased appetite [Recovering/Resolving]
  - Disinhibition [Recovering/Resolving]
  - Tachyphrenia [Recovering/Resolving]
  - Suicidal ideation [Recovering/Resolving]
  - Tearfulness [Recovering/Resolving]
  - Depressed mood [Recovering/Resolving]
  - Irritability [Recovering/Resolving]

NARRATIVE: CASE EVENT DATE: 2019
